FAERS Safety Report 7910523-6 (Version None)
Quarter: 2011Q4

REPORT INFORMATION
  Report Type: 
  Country: None (occurrence: None)
  Receive Date: 20111111
  Receipt Date: 20111028
  Transmission Date: 20120403
  Serious: Yes (Other)
  Sender: FDA-Public Use
  Company Number: PHHY2011JP33081

PATIENT
  Sex: Male
  Weight: 66 kg

DRUGS (3)
  1. SANDOSTATIN LAR [Suspect]
     Indication: CARCINOID TUMOUR OF THE GASTROINTESTINAL TRACT
     Dosage: 30 MG, QMO
     Route: 030
     Dates: start: 20100826
  2. SANDOSTATIN LAR [Suspect]
     Dosage: 30 MG, UNK
     Route: 042
     Dates: start: 20110531
  3. SANDOSTATIN LAR [Suspect]
     Dosage: 30 MG,
     Route: 030
     Dates: start: 20110506

REACTIONS (3)
  - INJECTION SITE INDURATION [None]
  - INJECTION SITE NECROSIS [None]
  - INJECTION SITE MASS [None]
